FAERS Safety Report 10039879 (Version 1)
Quarter: 2014Q1

REPORT INFORMATION
  Report Type: Report from Study
  Country: CA (occurrence: CA)
  Receive Date: 20140326
  Receipt Date: 20140326
  Transmission Date: 20141002
  Serious: Yes (Other)
  Sender: FDA-Public Use
  Company Number: CA-JNJFOC-20140311797

PATIENT
  Age: 41 Year
  Sex: Male
  Weight: 89.9 kg

DRUGS (2)
  1. REMICADE [Suspect]
     Indication: ANKYLOSING SPONDYLITIS
     Route: 042
     Dates: start: 20080220
  2. DICLOFENAC [Concomitant]
     Route: 065

REACTIONS (1)
  - Skin discolouration [Recovered/Resolved]
